FAERS Safety Report 16463651 (Version 2)
Quarter: 2019Q3

REPORT INFORMATION
  Report Type: Spontaneous
  Country: US (occurrence: US)
  Receive Date: 20190621
  Receipt Date: 20190710
  Transmission Date: 20191004
  Serious: Yes (Hospitalization)
  Sender: FDA-Public Use
  Company Number: US-ORPHAN EUROPE-2069451

PATIENT
  Age: 13 Year
  Sex: Male

DRUGS (3)
  1. CARBAGLU [Suspect]
     Active Substance: CARGLUMIC ACID
     Indication: ORNITHINE TRANSCARBAMOYLASE DEFICIENCY
     Dates: start: 201905, end: 20190610
  2. RAVICTI [Concomitant]
     Active Substance: GLYCEROL PHENYLBUTYRATE
     Dates: start: 201905
  3. AMMONUL [Concomitant]
     Active Substance: SODIUM BENZOATE\SODIUM PHENYLACETATE
     Dates: start: 201905

REACTIONS (3)
  - Product administration error [Recovered/Resolved]
  - Disease progression [Unknown]
  - Off label use [Recovered/Resolved]

NARRATIVE: CASE EVENT DATE: 201905
